FAERS Safety Report 18175422 (Version 1)
Quarter: 2020Q3

REPORT INFORMATION
  Report Type: Spontaneous
  Country: US (occurrence: US)
  Receive Date: 20200820
  Receipt Date: 20200820
  Transmission Date: 20201103
  Serious: Yes (Other)
  Sender: FDA-Public Use
  Company Number: None

PATIENT
  Age: 65 Year
  Sex: Female
  Weight: 71.1 kg

DRUGS (8)
  1. UNITHYROID [Concomitant]
  2. FLAXSEED [Concomitant]
     Active Substance: FLAX SEED
  3. ZYRTEC [Concomitant]
     Active Substance: CETIRIZINE HYDROCHLORIDE
  4. MAGNESIUM?GLYCINATE [Concomitant]
  5. DIAZEPAM 2 MG TABLETS [Suspect]
     Active Substance: DIAZEPAM
     Indication: VERTIGO
     Dosage: ?          QUANTITY:1 TABLET(S);?
     Route: 048
     Dates: start: 20200801, end: 20200816
  6. DIAZEPAM. [Concomitant]
     Active Substance: DIAZEPAM
  7. ONE?A?DAY VITAMINS [Concomitant]
  8. RESTASIS [Concomitant]
     Active Substance: CYCLOSPORINE

REACTIONS (2)
  - Gait disturbance [None]
  - Vertigo [None]

NARRATIVE: CASE EVENT DATE: 20200802
